FAERS Safety Report 5231238-1 (Version None)
Quarter: 2007Q1

REPORT INFORMATION
  Report Type: 
  Country: None (occurrence: None)
  Receive Date: 20070206
  Receipt Date: 20070126
  Transmission Date: 20070707
  Serious: Yes (Death, Hospitalization)
  Sender: FDA-Public Use
  Company Number: 2007AC00057

PATIENT
  Age: 671 Month
  Sex: Female
  Weight: 100 kg

DRUGS (12)
  1. SEROQUEL [Suspect]
     Route: 048
     Dates: start: 20041104, end: 20041108
  2. SEROQUEL [Suspect]
     Route: 048
     Dates: start: 20041108
  3. SEROQUEL [Suspect]
     Dosage: 1/2 MORNINGS - 1 EVENINGS
     Route: 048
     Dates: start: 20041101, end: 20041201
  4. SEROQUEL [Suspect]
     Route: 048
     Dates: start: 20041214
  5. CONTRAMAL [Suspect]
  6. LORAZEPAM [Suspect]
  7. EFFEXOR [Suspect]
     Dates: start: 20061104
  8. SELECTOL [Suspect]
  9. PANTOZOL [Suspect]
  10. PANTOZOL [Suspect]
     Dates: start: 20041201
  11. LORAMET [Concomitant]
  12. LORAMET [Concomitant]

REACTIONS (5)
  - COMPLETED SUICIDE [None]
  - CONFUSIONAL STATE [None]
  - DRUG TOXICITY [None]
  - MULTIPLE DRUG OVERDOSE [None]
  - SOMNOLENCE [None]
